FAERS Safety Report 7409420-4 (Version None)
Quarter: 2011Q2

REPORT INFORMATION
  Report Type: 
  Country: None (occurrence: None)
  Receive Date: 20110407
  Receipt Date: 20110407
  Transmission Date: 20111010
  Serious: No
  Sender: FDA-Public Use
  Company Number: None

PATIENT
  Age: 77 Year
  Sex: Male
  Weight: 63 kg

DRUGS (1)
  1. ACETYLCYSTEINE [Suspect]
     Dosage: OTHER INHALE
     Route: 055
     Dates: start: 20101201, end: 20101201

REACTIONS (2)
  - RESPIRATORY DISTRESS [None]
  - DYSPNOEA [None]
